FAERS Safety Report 5749816-X (Version None)
Quarter: 2008Q2

REPORT INFORMATION
  Report Type: 
  Country: None (occurrence: None)
  Receive Date: 20080527
  Receipt Date: 20080523
  Transmission Date: 20081010
  Serious: Yes (Hospitalization, Other)
  Sender: FDA-Public Use
  Company Number: RO-BRISTOL-MYERS SQUIBB COMPANY-14204424

PATIENT
  Age: 17 Year

DRUGS (8)
  1. STAVUDINE [Suspect]
     Indication: RETROVIRAL INFECTION
  2. DIDANOSINE [Suspect]
     Indication: RETROVIRAL INFECTION
  3. ATAZANAVIR SULFATE [Suspect]
     Indication: RETROVIRAL INFECTION
  4. INDINIVIR SULFATE [Suspect]
     Indication: RETROVIRAL INFECTION
  5. TRIZIVIR [Suspect]
     Indication: RETROVIRAL INFECTION
  6. ABACAVIR [Suspect]
     Indication: RETROVIRAL INFECTION
  7. EPIVIR [Suspect]
     Indication: RETROVIRAL INFECTION
  8. RITONAVIR [Suspect]
     Indication: RETROVIRAL INFECTION

REACTIONS (4)
  - LIPODYSTROPHY ACQUIRED [None]
  - NEUROPATHY PERIPHERAL [None]
  - OSTEONECROSIS [None]
  - PANCREATITIS [None]
